FAERS Safety Report 16840909 (Version 2)
Quarter: 2020Q1

REPORT INFORMATION
  Report Type: Report from Study
  Country: US (occurrence: US)
  Receive Date: 20190923
  Receipt Date: 20200129
  Transmission Date: 20200409
  Serious: Yes (Other)
  Sender: FDA-Public Use
  Company Number: US-ACTELION-A-NJ2016-147499

PATIENT
  Sex: Female
  Weight: 90.7 kg

DRUGS (7)
  1. DILTIAZEM. [Concomitant]
     Active Substance: DILTIAZEM
  2. VELETRI [Suspect]
     Active Substance: EPOPROSTENOL
     Indication: PULMONARY ARTERIAL HYPERTENSION
     Dosage: 27 NG/KG, PER MIN
     Route: 042
  3. VELETRI [Suspect]
     Active Substance: EPOPROSTENOL
     Dosage: 24 NG/KG, PER MIN
     Route: 042
  4. WARFARIN [Concomitant]
     Active Substance: WARFARIN
  5. VELETRI [Suspect]
     Active Substance: EPOPROSTENOL
     Dosage: 22 NG/KG, PER MIN
     Route: 042
     Dates: start: 20160419
  6. OPSUMIT [Concomitant]
     Active Substance: MACITENTAN
     Route: 048
  7. SILDENAFIL CITRATE. [Concomitant]
     Active Substance: SILDENAFIL CITRATE

REACTIONS (35)
  - Confusional state [Unknown]
  - Flushing [Unknown]
  - Catheter site swelling [Unknown]
  - Catheter site erythema [Not Recovered/Not Resolved]
  - Catheter site pain [Unknown]
  - Catheter site discharge [Not Recovered/Not Resolved]
  - Catheter site pruritus [Unknown]
  - Pain in extremity [Unknown]
  - Catheter site related reaction [Unknown]
  - Sternal fracture [Unknown]
  - Mass [Unknown]
  - Alopecia [Unknown]
  - Myalgia [Not Recovered/Not Resolved]
  - Non-cardiac chest pain [Unknown]
  - Nausea [Unknown]
  - Rash pruritic [Unknown]
  - Neuropathy peripheral [Unknown]
  - Catheter site hypersensitivity [Unknown]
  - Diarrhoea [Unknown]
  - Pain in jaw [Unknown]
  - Catheter site vesicles [Not Recovered/Not Resolved]
  - Urticaria [Unknown]
  - Dyspnoea exertional [Unknown]
  - Muscle spasms [Unknown]
  - Vomiting [Unknown]
  - Chest discomfort [Recovered/Resolved]
  - Lip swelling [Recovered/Resolved]
  - Catheter site warmth [Unknown]
  - Palmar-plantar erythrodysaesthesia syndrome [Unknown]
  - Nasopharyngitis [Unknown]
  - Rash [Unknown]
  - Dyspnoea [Unknown]
  - Headache [Not Recovered/Not Resolved]
  - Anaemia [Recovered/Resolved]
  - Weight decreased [Unknown]
